FAERS Safety Report 4991400-X (Version None)
Quarter: 2006Q2

REPORT INFORMATION
  Report Type: 
  Country: None (occurrence: None)
  Receive Date: 20060501
  Receipt Date: 20060418
  Transmission Date: 20061013
  Serious: Yes (Hospitalization)
  Sender: FDA-Public Use
  Company Number: B0421362A

PATIENT
  Age: 87 Year
  Sex: Male

DRUGS (1)
  1. LANOXIN [Suspect]

REACTIONS (3)
  - ANAEMIA [None]
  - FATIGUE [None]
  - NAUSEA [None]
